FAERS Safety Report 9741453 (Version 1)
Quarter: 2013Q4

REPORT INFORMATION
  Report Type: Spontaneous
  Country: BR (occurrence: BR)
  Receive Date: 20131209
  Receipt Date: 20131209
  Transmission Date: 20140711
  Serious: Yes (Death, Other)
  Sender: FDA-Public Use
  Company Number: PHHY2013BR142851

PATIENT
  Sex: Female
  Weight: 40 kg

DRUGS (1)
  1. EXELON [Suspect]
     Dosage: 0.5 DF, DAILY
     Route: 048
     Dates: start: 201306

REACTIONS (5)
  - Bronchopneumonia [Fatal]
  - Fatigue [Fatal]
  - Cyanosis [Fatal]
  - Swelling [Fatal]
  - Local swelling [Fatal]
